FAERS Safety Report 8666440 (Version 3)
Quarter: 2012Q4

REPORT INFORMATION
  Report Type: 
  Country: US (occurrence: US)
  Receive Date: 20120716
  Receipt Date: 20121211
  Transmission Date: 20130627
  Serious: Yes (Hospitalization)
  Sender: FDA-Public Use
  Company Number: US-GLAXOSMITHKLINE-A0983769A

PATIENT
  Age: 68 Year
  Sex: Female

DRUGS (9)
  1. FLOVENT [Suspect]
     Indication: BRONCHIECTASIS
     Dosage: 2APP At night
     Route: 055
     Dates: start: 20120113, end: 20120113
  2. PLAQUENIL [Concomitant]
  3. MULTI VITAMIN [Concomitant]
  4. LANSOPRAZOLE [Concomitant]
  5. CALCIUM + D [Concomitant]
  6. GLUCOSAMINE [Concomitant]
  7. FISH OIL [Concomitant]
  8. DOCUSATE SODIUM [Concomitant]
  9. GOLD [Concomitant]

REACTIONS (23)
  - Atrial fibrillation [Recovering/Resolving]
  - Anaemia [Recovering/Resolving]
  - Neuropathy peripheral [Recovering/Resolving]
  - Pericardial effusion [Recovering/Resolving]
  - Apparent death [Recovering/Resolving]
  - Pleural effusion [Recovering/Resolving]
  - Staphylococcal infection [Recovering/Resolving]
  - Vomiting [Recovered/Resolved]
  - Stomatitis [Recovering/Resolving]
  - Dry throat [Recovering/Resolving]
  - Dyspnoea [Recovering/Resolving]
  - Urinary tract infection [Recovering/Resolving]
  - Blood urine present [Recovering/Resolving]
  - Fatigue [Recovering/Resolving]
  - Eosinophil count increased [Recovering/Resolving]
  - Chest pain [Recovering/Resolving]
  - Pallor [Recovering/Resolving]
  - Haemoglobin decreased [Recovering/Resolving]
  - Asthenia [Recovering/Resolving]
  - Escherichia urinary tract infection [Recovering/Resolving]
  - Adverse drug reaction [Recovering/Resolving]
  - Tongue haemorrhage [Recovered/Resolved]
  - Tongue disorder [Recovered/Resolved]
